FAERS Safety Report 4450494-0 (Version None)
Quarter: 2004Q3

REPORT INFORMATION
  Report Type: 
  Country: None (occurrence: None)
  Receive Date: 20040804
  Receipt Date: 20040323
  Transmission Date: 20050211
  Serious: Yes (Other)
  Sender: FDA-Public Use
  Company Number: 205438

PATIENT
  Age: 58 Year
  Sex: Female

DRUGS (8)
  1. HERCEPTIN [Suspect]
     Indication: BREAST CANCER METASTATIC
     Dosage: 1/WEEK ; Q3W   :   INTRAVENOUS
     Route: 042
     Dates: start: 20011101, end: 20030101
  2. HERCEPTIN [Suspect]
     Indication: BREAST CANCER METASTATIC
     Dosage: 1/WEEK ; Q3W   :   INTRAVENOUS
     Route: 042
     Dates: start: 20030101, end: 20040323
  3. TAXOTERE [Concomitant]
  4. VASOTEC [Concomitant]
  5. SPIRONOLACTONE [Concomitant]
  6. COUMADIN [Concomitant]
  7. PROZAC [Concomitant]
  8. VITAMINS (VITAMINS NOS) [Concomitant]

REACTIONS (1)
  - VENTRICULAR DYSFUNCTION [None]
